FAERS Safety Report 10283465 (Version 10)
Quarter: 2015Q4

REPORT INFORMATION
  Report Type: Report from Study
  Country: CA (occurrence: CA)
  Receive Date: 20140708
  Receipt Date: 20151231
  Transmission Date: 20160304
  Serious: Yes (Other)
  Sender: FDA-Public Use
  Company Number: PHHY2013CA153930

PATIENT
  Age: 64 Year
  Sex: Female

DRUGS (6)
  1. RALOXIFENE HCL [Concomitant]
     Active Substance: RALOXIFENE
     Indication: BLOOD GROWTH HORMONE
     Dosage: 60 MG, QD
     Route: 065
  2. SANDOSTATIN LAR DEPOT [Suspect]
     Active Substance: OCTREOTIDE ACETATE
     Dosage: 40 MG, QMO
     Route: 030
  3. SANDOSTATIN LAR DEPOT [Suspect]
     Active Substance: OCTREOTIDE ACETATE
     Indication: ACROMEGALY
     Dosage: 30 MG, QMO
     Route: 030
     Dates: start: 20130104
  4. SANDOSTATIN LAR DEPOT [Suspect]
     Active Substance: OCTREOTIDE ACETATE
     Dosage: 30 MG, QMO
     Route: 030
  5. CABERGOLINE. [Concomitant]
     Active Substance: CABERGOLINE
     Indication: PRODUCT USED FOR UNKNOWN INDICATION
     Dosage: 0.5 MG, QW2 (EVERY WEDNESDAY AND SATURDAY)
     Route: 065
  6. CABERGOLINE. [Concomitant]
     Active Substance: CABERGOLINE
     Dosage: 1 MG, UNK
     Route: 065
     Dates: start: 20150313

REACTIONS (9)
  - Herpes virus infection [Unknown]
  - Rash pustular [Unknown]
  - Visual impairment [Unknown]
  - Poor quality sleep [Unknown]
  - Blood pressure increased [Unknown]
  - Body temperature decreased [Unknown]
  - Retinal disorder [Unknown]
  - Abdominal discomfort [Unknown]
  - Retinal oedema [Unknown]

NARRATIVE: CASE EVENT DATE: 2014
